FAERS Safety Report 21591899 (Version 1)
Quarter: 2022Q4

REPORT INFORMATION
  Report Type: Spontaneous
  Country: FR (occurrence: FR)
  Receive Date: 20221114
  Receipt Date: 20221114
  Transmission Date: 20230113
  Serious: Yes (Congenital Anomaly, Other)
  Sender: FDA-Public Use
  Company Number: None

PATIENT
  Sex: Female

DRUGS (2)
  1. ESTRADIOL [Suspect]
     Active Substance: ESTRADIOL
  2. PROGESTERONE [Suspect]
     Active Substance: PROGESTERONE

REACTIONS (3)
  - Uterine atrophy [Not Recovered/Not Resolved]
  - Suicide attempt [Unknown]
  - Schizophrenia [Unknown]
